FAERS Safety Report 4783143-2 (Version None)
Quarter: 2005Q3

REPORT INFORMATION
  Report Type: 
  Country: None (occurrence: None)
  Receive Date: 20050929
  Receipt Date: 20040902
  Transmission Date: 20060218
  Serious: Yes (Hospitalization)
  Sender: FDA-Public Use
  Company Number: US-ABBOTT-04P-163-0272420-00

PATIENT
  Age: 40 Year
  Sex: Male

DRUGS (4)
  1. KALETRA [Suspect]
     Indication: DRUG USE FOR UNKNOWN INDICATION
  2. STAVUDINE [Concomitant]
     Indication: DRUG USE FOR UNKNOWN INDICATION
  3. VINEAD [Concomitant]
     Indication: DRUG USE FOR UNKNOWN INDICATION
  4. LAMIVUDINE [Concomitant]
     Indication: DRUG USE FOR UNKNOWN INDICATION

REACTIONS (3)
  - INFECTION [None]
  - LOSS OF CONSCIOUSNESS [None]
  - OVERDOSE [None]
